FAERS Safety Report 24770927 (Version 1)
Quarter: 2024Q4

REPORT INFORMATION
  Report Type: Spontaneous
  Country: US (occurrence: None)
  Receive Date: 20241224
  Receipt Date: 20241224
  Transmission Date: 20250115
  Serious: Yes (Hospitalization)
  Sender: Public
  Company Number: None

PATIENT
  Sex: Female

DRUGS (3)
  1. PULMOZYME [Suspect]
     Active Substance: DORNASE ALFA
     Indication: Cystic fibrosis
     Dosage: 1MG 2 TIMES A DAY INHALE
     Route: 055
     Dates: start: 202011
  2. BRONCHITOL [Concomitant]
     Active Substance: MANNITOL
  3. CAYSTON INH SOLN [Concomitant]

REACTIONS (1)
  - Hospitalisation [None]
